FAERS Safety Report 15245447 (Version 1)
Quarter: 2018Q3

REPORT INFORMATION
  Report Type: Spontaneous
  Country: US (occurrence: US)
  Receive Date: 20180713
  Receipt Date: 20180713
  Transmission Date: 20181010
  Serious: Yes (Other)
  Sender: FDA-Public Use
  Company Number: None

PATIENT
  Age: 33 Year
  Sex: Female
  Weight: 67.5 kg

DRUGS (5)
  1. NICOTINE. [Concomitant]
     Active Substance: NICOTINE
  2. METRONIDAZOLE. [Concomitant]
     Active Substance: METRONIDAZOLE
  3. NEXPLANON [Suspect]
     Active Substance: ETONOGESTREL
     Indication: CONTRACEPTION
     Dosage: ?          QUANTITY:1 IMPLANT;OTHER FREQUENCY:3 YEARS;OTHER ROUTE:SUBDERMAL IMPLANT?
     Dates: start: 20180223
  4. METHAMPHETAMINE HYDROCHLORIDE. [Concomitant]
     Active Substance: METHAMPHETAMINE HYDROCHLORIDE
  5. CANNABIS [Concomitant]
     Active Substance: CANNABIS SATIVA SUBSP. INDICA TOP

REACTIONS (20)
  - Pruritus [None]
  - Pain in extremity [None]
  - Hypoaesthesia [None]
  - Peripheral coldness [None]
  - Mental impairment [None]
  - Musculoskeletal pain [None]
  - Fatigue [None]
  - Feeling abnormal [None]
  - Neuropathy peripheral [None]
  - Implant site pain [None]
  - Piloerection [None]
  - Implant site warmth [None]
  - Dysgeusia [None]
  - Hypoaesthesia oral [None]
  - Device issue [None]
  - Movement disorder [None]
  - Implant site paraesthesia [None]
  - Muscle twitching [None]
  - Nausea [None]
  - Procedural complication [None]

NARRATIVE: CASE EVENT DATE: 20180713
